FAERS Safety Report 10511000 (Version 2)
Quarter: 2016Q4

REPORT INFORMATION
  Report Type: Spontaneous
  Country: US (occurrence: US)
  Receive Date: 20141010
  Receipt Date: 20161227
  Transmission Date: 20170206
  Serious: No
  Sender: FDA-Public Use
  Company Number: US-PFIZER INC-2014276455

PATIENT
  Age: 12 Year
  Sex: Male

DRUGS (1)
  1. GENOTROPIN [Suspect]
     Active Substance: SOMATROPIN
     Dosage: UNK, CYCLIC (2.6 DAILY, 6 DAYS PER WEEK)
     Dates: start: 20140825

REACTIONS (2)
  - Pain in extremity [Unknown]
  - Limb discomfort [Unknown]
